FAERS Safety Report 9909290 (Version 2)
Quarter: 2014Q1

REPORT INFORMATION
  Report Type: Spontaneous
  Country: US (occurrence: US)
  Receive Date: 20140219
  Receipt Date: 20140219
  Transmission Date: 20141002
  Serious: No
  Sender: FDA-Public Use
  Company Number: US-GILEAD-2011-0048607

PATIENT
  Age: 61 Year
  Sex: Male

DRUGS (5)
  1. LETAIRIS [Suspect]
     Indication: PULMONARY HYPERTENSION
     Dosage: 10 MG, UNK
     Route: 048
     Dates: start: 20100901
  2. REMODULIN [Concomitant]
  3. ADCIRCA [Concomitant]
  4. DIGOXIN [Suspect]
  5. LASIX                              /00032601/ [Concomitant]

REACTIONS (2)
  - Fatigue [Unknown]
  - Overdose [Unknown]
